FAERS Safety Report 13863372 (Version 1)
Quarter: 2017Q3

REPORT INFORMATION
  Report Type: Spontaneous
  Country: US (occurrence: US)
  Receive Date: 20170814
  Receipt Date: 20170814
  Transmission Date: 20171127
  Serious: No
  Sender: FDA-Public Use
  Company Number: US-PFIZER INC-2017346071

PATIENT
  Age: 70 Year
  Sex: Female
  Weight: 84.82 kg

DRUGS (10)
  1. OMEPRAZOLE. [Concomitant]
     Active Substance: OMEPRAZOLE
     Indication: GASTROOESOPHAGEAL REFLUX DISEASE
     Dosage: 40 MG, 1X/DAY
  2. FENOFIBRATE. [Concomitant]
     Active Substance: FENOFIBRATE
     Indication: BLOOD CHOLESTEROL ABNORMAL
     Dosage: 160 MG, DAILY
  3. CELEBREX [Suspect]
     Active Substance: CELECOXIB
     Indication: ARTHROPATHY
     Dosage: 200 MG, 1X/DAY
     Dates: end: 20170806
  4. CITALOPRAM [Suspect]
     Active Substance: CITALOPRAM HYDROBROMIDE
     Indication: DEPRESSION
     Dosage: 20 MG, 1X/DAY (20MG AT BEDTIME)
  5. FENOFIBRATE. [Concomitant]
     Active Substance: FENOFIBRATE
     Indication: HYPERLIPIDAEMIA
  6. LISINOPRIL. [Concomitant]
     Active Substance: LISINOPRIL
     Indication: BLOOD PRESSURE MEASUREMENT
     Dosage: 40 MG, 1X/DAY
  7. AMLODIPINE [Concomitant]
     Active Substance: AMLODIPINE BESYLATE
     Indication: BLOOD PRESSURE MEASUREMENT
     Dosage: 5 MG, 1X/DAY
  8. LANTUS [Concomitant]
     Active Substance: INSULIN GLARGINE
     Indication: TYPE 2 DIABETES MELLITUS
     Dosage: 60 IU, DAILY
     Dates: start: 2016
  9. CELEBREX [Suspect]
     Active Substance: CELECOXIB
     Indication: INTERVERTEBRAL DISC DEGENERATION
  10. CELEBREX [Suspect]
     Active Substance: CELECOXIB
     Indication: OSTEOARTHRITIS
     Dosage: 200 MG, 2X/DAY

REACTIONS (4)
  - Musculoskeletal stiffness [Not Recovered/Not Resolved]
  - Product use issue [Unknown]
  - Neck pain [Not Recovered/Not Resolved]
  - Back pain [Unknown]

NARRATIVE: CASE EVENT DATE: 2017
